FAERS Safety Report 5723623-6 (Version None)
Quarter: 2008Q2

REPORT INFORMATION
  Report Type: 
  Country: None (occurrence: None)
  Receive Date: 20080429
  Receipt Date: 20080429
  Transmission Date: 20081010
  Serious: Yes (Hospitalization)
  Sender: FDA-Public Use
  Company Number: None

PATIENT
  Age: 54 Year
  Sex: Male
  Weight: 97.5234 kg

DRUGS (1)
  1. DIGITEK 250MCG BERTEK [Suspect]
     Indication: CARDIAC FAILURE CONGESTIVE
     Dates: start: 20070101, end: 20080425

REACTIONS (2)
  - NAUSEA [None]
  - VOMITING [None]
